FAERS Safety Report 6488169-9 (Version None)
Quarter: 2009Q4

REPORT INFORMATION
  Report Type: 
  Country: None (occurrence: None)
  Receive Date: 20091210
  Receipt Date: 20091201
  Transmission Date: 20100525
  Serious: Yes (Hospitalization)
  Sender: FDA-Public Use
  Company Number: A0834218A

PATIENT
  Age: 69 Year
  Sex: Female

DRUGS (1)
  1. AVANDIA [Suspect]
     Indication: DIABETES MELLITUS
     Dosage: 8MG PER DAY
     Route: 048
     Dates: start: 20010101, end: 20051012

REACTIONS (3)
  - CARDIAC VALVE DISEASE [None]
  - MYOCARDIAL INFARCTION [None]
  - PALPITATIONS [None]
